FAERS Safety Report 9347982 (Version 1)
Quarter: 2013Q3

REPORT INFORMATION
  Report Type: Spontaneous
  Country: US (occurrence: None)
  Receive Date: 20130612
  Receipt Date: 20130612
  Transmission Date: 20140515
  Serious: Yes (Hospitalization)
  Sender: FDA-Public Use
  Company Number: None

PATIENT
  Age: 82 Year
  Sex: Male
  Weight: 79.3 kg

DRUGS (2)
  1. LITHIUM [Suspect]
     Indication: ACUTE MYELOID LEUKAEMIA
     Dosage: 1 TAB BID/300MG/DAY
     Dates: start: 20130528
  2. TRETINOIN [Suspect]
     Indication: ACUTE MYELOID LEUKAEMIA
     Dosage: 2 TABS BID D1-7, D15-21
     Dates: start: 20130603, end: 20130609

REACTIONS (2)
  - Delirium [None]
  - Chest pain [None]
